FAERS Safety Report 6750659-9 (Version None)
Quarter: 2010Q2

REPORT INFORMATION
  Report Type: 
  Country: None (occurrence: None)
  Receive Date: 20100602
  Receipt Date: 20100524
  Transmission Date: 20101027
  Serious: Yes (Hospitalization)
  Sender: FDA-Public Use
  Company Number: US-BIOGENIDEC-2010BI017381

PATIENT
  Age: 40 Year
  Sex: Female

DRUGS (3)
  1. TYSABRI [Suspect]
     Indication: MULTIPLE SCLEROSIS
     Route: 042
     Dates: start: 20061030, end: 20070310
  2. TYSABRI [Suspect]
     Route: 042
     Dates: start: 20070421, end: 20080426
  3. TYSABRI [Suspect]
     Route: 042
     Dates: start: 20090223

REACTIONS (1)
  - MASTOIDITIS [None]
